FAERS Safety Report 13428189 (Version 1)
Quarter: 2017Q2

REPORT INFORMATION
  Report Type: Spontaneous
  Country: FR (occurrence: FR)
  Receive Date: 20170411
  Receipt Date: 20170411
  Transmission Date: 20170830
  Serious: Yes (Hospitalization)
  Sender: FDA-Public Use
  Company Number: FR-PFIZER INC-2017150799

PATIENT
  Age: 83 Year
  Sex: Male

DRUGS (5)
  1. LASILIX FAIBLE [Concomitant]
     Active Substance: FUROSEMIDE
     Indication: HYPERTENSION
     Dosage: UNK
     Route: 048
  2. EUPRESSYL /00631801/ [Concomitant]
     Active Substance: URAPIDIL
     Indication: HYPERTENSION
     Dosage: UNK
     Route: 048
  3. DOCETAXEL. [Suspect]
     Active Substance: DOCETAXEL
     Indication: PROSTATE CANCER
     Dosage: 75 MG/M2, EVERY 3 WEEKS
     Route: 042
     Dates: start: 20160129, end: 20160307
  4. LOVENOX [Concomitant]
     Active Substance: ENOXAPARIN SODIUM
     Dosage: UNK
     Route: 048
  5. XGEVA [Suspect]
     Active Substance: DENOSUMAB
     Indication: BONE NEOPLASM
     Dosage: 120 MG, EVERY 28 DAYS
     Route: 042
     Dates: start: 20160129

REACTIONS (2)
  - Chest pain [Recovered/Resolved]
  - Alveolitis allergic [Recovered/Resolved]

NARRATIVE: CASE EVENT DATE: 20160306
